FAERS Safety Report 26024483 (Version 2)
Quarter: 2025Q4

REPORT INFORMATION
  Report Type: Report from Study
  Country: US (occurrence: US)
  Receive Date: 20251111
  Receipt Date: 20251116
  Transmission Date: 20260119
  Serious: Yes (Other)
  Sender: ABBVIE
  Company Number: US-ABBVIE-6535331

PATIENT
  Age: 66 Year
  Sex: Male

DRUGS (1)
  1. CREON [Suspect]
     Active Substance: PANCRELIPASE AMYLASE\PANCRELIPASE LIPASE\PANCRELIPASE PROTEASE
     Indication: Product used for unknown indication
     Route: 048
     Dates: start: 20250715

REACTIONS (5)
  - Renal vein occlusion [Unknown]
  - Gastrointestinal disorder [Unknown]
  - Pain [Unknown]
  - Haemorrhage [Unknown]
  - Malaise [Unknown]

NARRATIVE: CASE EVENT DATE: 20250101
